FAERS Safety Report 9548130 (Version 1)
Quarter: 2013Q2

REPORT INFORMATION
  Report Type: Spontaneous
  Country: US (occurrence: None)
  Receive Date: 20130627
  Receipt Date: 20130627
  Transmission Date: 20140414
  Serious: No
  Sender: FDA-Public Use
  Company Number: 1000044994

PATIENT
  Age: 33 Year
  Sex: Female

DRUGS (5)
  1. LINZESS (LINACLOTIDE) (145 MICROGRAM, CAPSULES) [Suspect]
     Indication: CONSTIPATION
     Route: 048
     Dates: start: 20130429
  2. ASACOL (MESALAZINE) (MESALAZINE) [Concomitant]
  3. BIRTH CONTROL PILL (NOS) (BIRTH CONTROL PILL (NOS)) (BIRTH CONTROL PILL (NOS)) [Concomitant]
  4. CALCIUM (CALCIUM) [Concomitant]
  5. VITAMIN D (VITAMIN D) [Concomitant]

REACTIONS (1)
  - Visual impairment [None]
